FAERS Safety Report 16819947 (Version 1)
Quarter: 2019Q3

REPORT INFORMATION
  Report Type: Spontaneous
  Country: DE (occurrence: DE)
  Receive Date: 20190918
  Receipt Date: 20190918
  Transmission Date: 20191005
  Serious: Yes (Life-Threatening)
  Sender: FDA-Public Use
  Company Number: PHHY2019DE214336

PATIENT
  Age: 60 Year
  Sex: Male

DRUGS (2)
  1. DABRAFENIB [Suspect]
     Active Substance: DABRAFENIB
     Indication: MALIGNANT MELANOMA STAGE III
     Dosage: UNK
     Route: 065
     Dates: start: 2019
  2. TRAMETINIB [Suspect]
     Active Substance: TRAMETINIB
     Indication: MALIGNANT MELANOMA STAGE III
     Dosage: UNK
     Route: 065
     Dates: start: 2019

REACTIONS (7)
  - Muscular weakness [Recovering/Resolving]
  - Acquired haemophilia [Unknown]
  - Rash [Unknown]
  - Haematoma [Recovering/Resolving]
  - Oedema [Unknown]
  - Haemolytic anaemia [Unknown]
  - Arthralgia [Unknown]
